FAERS Safety Report 10066224 (Version 1)
Quarter: 2014Q2

REPORT INFORMATION
  Report Type: Report from Study
  Country: CA (occurrence: CA)
  Receive Date: 20140408
  Receipt Date: 20140408
  Transmission Date: 20141212
  Serious: Yes (Other)
  Sender: FDA-Public Use
  Company Number: CA-JNJFOC-20140402365

PATIENT
  Age: 53 Year
  Sex: Female
  Weight: 70.76 kg

DRUGS (1)
  1. REMICADE [Suspect]
     Indication: CROHN^S DISEASE
     Route: 042
     Dates: start: 200810

REACTIONS (2)
  - Dental implantation [Unknown]
  - Gingival disorder [Unknown]
